FAERS Safety Report 7029473-5 (Version None)
Quarter: 2010Q4

REPORT INFORMATION
  Report Type: 
  Country: None (occurrence: None)
  Receive Date: 20101005
  Receipt Date: 20100927
  Transmission Date: 20110411
  Serious: Yes (Other)
  Sender: FDA-Public Use
  Company Number: US-AMGEN-QUU424142

PATIENT
  Sex: Female
  Weight: 78.1 kg

DRUGS (8)
  1. NPLATE [Suspect]
     Indication: IDIOPATHIC THROMBOCYTOPENIC PURPURA
     Route: 058
     Dates: start: 20080916, end: 20100810
  2. ASPIRIN [Concomitant]
     Route: 048
     Dates: start: 20080118
  3. ASCORBIC ACID [Concomitant]
     Route: 048
     Dates: start: 20080601
  4. CLARITIN [Concomitant]
  5. PREPARATION H [Concomitant]
  6. TOPAMAX [Concomitant]
     Route: 048
     Dates: start: 20080101
  7. FOSAMAX [Concomitant]
     Route: 048
     Dates: start: 20080101
  8. WINRHO [Concomitant]
     Dates: start: 20080201

REACTIONS (11)
  - ANAEMIA HAEMOLYTIC AUTOIMMUNE [None]
  - BACTERIAL TEST [None]
  - BLOOD ERYTHROPOIETIN INCREASED [None]
  - BLOOD LACTATE DEHYDROGENASE INCREASED [None]
  - BONE MARROW RETICULIN FIBROSIS [None]
  - IDIOPATHIC THROMBOCYTOPENIC PURPURA [None]
  - MYELOPROLIFERATIVE DISORDER [None]
  - PRIMARY HYPERALDOSTERONISM [None]
  - RED BLOOD CELL SEDIMENTATION RATE INCREASED [None]
  - SERUM FERRITIN INCREASED [None]
  - THERAPEUTIC RESPONSE DECREASED [None]
